FAERS Safety Report 9917141 (Version 2)
Quarter: 2014Q2

REPORT INFORMATION
  Report Type: Spontaneous
  Country: US (occurrence: US)
  Receive Date: 20140221
  Receipt Date: 20140422
  Transmission Date: 20141212
  Serious: No
  Sender: FDA-Public Use
  Company Number: US-TEVA-464483USA

PATIENT
  Age: 22 Year
  Sex: Female
  Weight: 47.67 kg

DRUGS (2)
  1. PLAN B ONE-STEP [Suspect]
     Indication: POST COITAL CONTRACEPTION
     Dosage: 1.5 MILLIGRAM DAILY;
     Route: 048
     Dates: start: 20140103, end: 20140103
  2. NITROFURANTOIN [Concomitant]
     Indication: URINARY TRACT INFECTION

REACTIONS (2)
  - Micturition urgency [Recovered/Resolved]
  - Metrorrhagia [Recovered/Resolved]
